FAERS Safety Report 19582389 (Version 1)
Quarter: 2021Q3

REPORT INFORMATION
  Report Type: Spontaneous
  Country: US (occurrence: US)
  Receive Date: 20210720
  Receipt Date: 20210720
  Transmission Date: 20211014
  Serious: Yes (Other)
  Sender: FDA-Public Use
  Company Number: US-APOTEX-2021AP017565

PATIENT
  Age: 51 Year
  Sex: Male

DRUGS (2)
  1. MELPHALAN. [Suspect]
     Active Substance: MELPHALAN
     Indication: RENAL AMYLOIDOSIS
     Dosage: 4 MILLIGRAM, QD, FOLLOWED BY 3 WEEKS OFF
     Route: 048
     Dates: end: 202006
  2. MELPHALAN. [Suspect]
     Active Substance: MELPHALAN
     Indication: PRIMARY AMYLOIDOSIS
     Dosage: 4 MILLIGRAM, QD FOR 5 DAYS/WEEK CONTINUOUSLY THEREAFTER
     Route: 048

REACTIONS (1)
  - Cytopenia [Unknown]
